FAERS Safety Report 19907254 (Version 1)
Quarter: 2021Q4

REPORT INFORMATION
  Report Type: Spontaneous
  Country: US (occurrence: US)
  Receive Date: 20211001
  Receipt Date: 20211001
  Transmission Date: 20220303
  Serious: Yes (Other)
  Sender: FDA-Public Use
  Company Number: US-BRISTOL-MYERS SQUIBB COMPANY-BMS-2021-099512

PATIENT
  Sex: Female

DRUGS (19)
  1. NIVOLUMAB [Suspect]
     Active Substance: NIVOLUMAB
     Indication: Metastatic malignant melanoma
     Dosage: UNK
     Route: 065
     Dates: start: 20161208, end: 20161222
  2. TYLENOL WITH CODEINE [Concomitant]
     Active Substance: ACETAMINOPHEN\CODEINE PHOSPHATE
     Indication: Pain
     Dosage: TAKE 1 TABLET BY MOUTH EVERY 4 (FOUR) HOURS AS NEEDED FOR MILD PAIN
     Route: 048
  3. GENTEAL TEARS [HYPROMELLOSE] [Concomitant]
     Indication: Product used for unknown indication
     Dosage: ADMINISTER 1 DROP TO BOTH EYES AS NEEDED
     Route: 047
  4. FLEXERIL [Concomitant]
     Active Substance: CYCLOBENZAPRINE HYDROCHLORIDE
     Indication: Muscle spasms
     Dosage: 1 TAB, TID, AS NEEDED
     Route: 048
  5. TAFINLAR [Concomitant]
     Active Substance: DABRAFENIB MESYLATE
     Indication: Product used for unknown indication
     Dosage: TAKE 2 CAPSULES (150 MG) BY MOUTH TWICE DAILY. TAKE ON AN EMPTY STOMACH, 1 HOUR BEFORE OR 2 HOURS AF
     Route: 048
  6. TAFINLAR [Concomitant]
     Active Substance: DABRAFENIB MESYLATE
     Dosage: TAKE 2 CAPSULES (150 MG) BY MOUTH TWICE DAILY. TAKE ON AN EMPTY STOMACH, 1 HOUR BEFORE OR 2 HOURS AF
     Route: 048
  7. BENADRYL [Concomitant]
     Active Substance: DIPHENHYDRAMINE HYDROCHLORIDE
     Indication: Pruritus
     Dosage: CHEW 25 MG 4 (FOUR) TIMES A DAY AS NEEDED
     Route: 048
  8. LEXAPRO [Concomitant]
     Active Substance: ESCITALOPRAM OXALATE
     Indication: Product used for unknown indication
     Dosage: TAKE 10 MG BY MOUTH DAILY
     Route: 048
  9. MICROZIDE [Concomitant]
     Active Substance: HYDROCHLOROTHIAZIDE
     Indication: Product used for unknown indication
     Dosage: TAKE 12.5 MG BY MOUTH EVERY MORNING
     Route: 048
  10. NORCO [Concomitant]
     Active Substance: ACETAMINOPHEN\HYDROCODONE BITARTRATE
     Indication: Product used for unknown indication
     Dosage: TAKE 1 TABLET BY MOUTH EVERY 6 (SIX) HOURS AS NEEDED
     Route: 048
  11. IBUPROFEN [Concomitant]
     Active Substance: IBUPROFEN
     Indication: Pyrexia
     Dosage: TAKE 200 MG BY MOUTH EVERY 4 (FOUR) HOURS AS NEEDED
     Route: 048
  12. LEVOTHYROXINE [Concomitant]
     Active Substance: LEVOTHYROXINE
     Indication: Product used for unknown indication
     Dosage: TAKE 1 TABLET BY MOUTH EVERY DAY
     Route: 048
  13. ATIVAN [Concomitant]
     Active Substance: LORAZEPAM
     Indication: Anxiety
     Dosage: TAKE 1 TABLET (0.5 MG) BY MOUTH EVERY 8(EIGHT) HOURS AS NEEDED
     Route: 048
  14. VITAMINS NOS [Concomitant]
     Active Substance: VITAMINS
     Indication: Product used for unknown indication
     Dosage: TAKE BY MOUTH DAILY
     Route: 048
  15. ZOFRAN [Concomitant]
     Active Substance: ONDANSETRON HYDROCHLORIDE
     Indication: Vomiting
     Dosage: TAKE 1 TABLET EVERY 8 HOURS AS NEEDED
     Route: 065
  16. PROTONIX [Concomitant]
     Active Substance: PANTOPRAZOLE SODIUM
     Indication: Product used for unknown indication
     Dosage: TAKE 1 TABLET (40 MG) BY MOUTH DAILY WITH BREAKFAST
     Route: 048
  17. KLOR-CON [Concomitant]
     Active Substance: POTASSIUM CHLORIDE
     Indication: Product used for unknown indication
     Dosage: TAKE 2 TABLETS (20 MEQ) BY MOUTH DAILY FOR 5 DAYS, THEN 1 TABLET (10 MEQ) DAILY FOR 25 DAYS
     Route: 048
  18. PROCHLORPERAZINE EDISYLATE [Concomitant]
     Active Substance: PROCHLORPERAZINE EDISYLATE
     Indication: Nausea
     Dosage: TAKE 10 MG BY MOUTH EVERY 6 (SIX) HOURS AS NEEDED
     Route: 048
  19. MEKINIST [Concomitant]
     Active Substance: TRAMETINIB DIMETHYL SULFOXIDE
     Indication: Product used for unknown indication
     Dosage: TAKE 1 TABLET (2 MG) BY MOUTH DAILY ON EMPTY STOMACH, 1HR BEFORE OR 2HRS AFTER MEAL. KEEP REFRIGERAT
     Route: 048

REACTIONS (1)
  - Malignant neoplasm progression [Unknown]
